FAERS Safety Report 20781173 (Version 2)
Quarter: 2022Q3

REPORT INFORMATION
  Report Type: Report from Study
  Country: US (occurrence: US)
  Receive Date: 20220504
  Receipt Date: 20220826
  Transmission Date: 20221027
  Serious: Yes (Other)
  Sender: FDA-Public Use
  Company Number: US-BRISTOL-MYERS SQUIBB COMPANY-2022-025093

PATIENT
  Age: 80 Year
  Sex: Male
  Weight: 100.69 kg

DRUGS (1)
  1. REVLIMID [Suspect]
     Active Substance: LENALIDOMIDE
     Indication: Plasma cell myeloma
     Dosage: 14 DAYS ON 14DAYS OFF?EXPIRY DATE FOR A3662A: 31-MAY-2024
     Route: 048
     Dates: start: 20200630

REACTIONS (4)
  - Oral discomfort [Unknown]
  - Dysgeusia [Unknown]
  - Renal disorder [Unknown]
  - Off label use [Unknown]
